FAERS Safety Report 12902020 (Version 1)
Quarter: 2016Q4

REPORT INFORMATION
  Report Type: Report from Study
  Country: US (occurrence: US)
  Receive Date: 20161102
  Receipt Date: 20161102
  Transmission Date: 20170207
  Serious: Yes (Other)
  Sender: FDA-Public Use
  Company Number: US-CIPLA LTD.-2016LB20436

PATIENT

DRUGS (14)
  1. AMPRENAVIR [Suspect]
     Active Substance: AMPRENAVIR
     Dosage: UNK
     Route: 065
  2. ATAZANAVIR [Suspect]
     Active Substance: ATAZANAVIR
     Dosage: UNK
     Route: 065
  3. ZIDOVUDINE. [Suspect]
     Active Substance: ZIDOVUDINE
     Indication: HIV INFECTION
     Dosage: UNK
     Route: 065
  4. EMTRICITABINE [Suspect]
     Active Substance: EMTRICITABINE
     Dosage: UNK
     Route: 065
  5. NEVIRAPINE. [Suspect]
     Active Substance: NEVIRAPINE
     Dosage: UNK
     Route: 065
  6. NEVIRAPINE. [Suspect]
     Active Substance: NEVIRAPINE
     Indication: PROPHYLAXIS AGAINST HIV INFECTION
     Dosage: UNK
     Route: 065
  7. RITONAVIR. [Suspect]
     Active Substance: RITONAVIR
     Indication: HIV INFECTION
     Dosage: UNK
     Route: 065
  8. NELFINAVIR [Suspect]
     Active Substance: NELFINAVIR
     Dosage: UNK
     Route: 065
  9. LOPINAVIR [Suspect]
     Active Substance: LOPINAVIR
     Indication: HIV INFECTION
     Dosage: UNK
     Route: 065
  10. SAQUINAVIR [Suspect]
     Active Substance: SAQUINAVIR
     Dosage: UNK
     Route: 065
  11. LAMIVUDINE. [Suspect]
     Active Substance: LAMIVUDINE
     Indication: HIV INFECTION
     Dosage: UNK
     Route: 065
  12. INDINAVIR [Suspect]
     Active Substance: INDINAVIR
     Dosage: UNK
     Route: 065
  13. FOS-AMPRENAVIR [Suspect]
     Active Substance: FOSAMPRENAVIR
     Dosage: UNK
     Route: 065
  14. TIPRANAVIR [Suspect]
     Active Substance: TIPRANAVIR
     Dosage: UNK
     Route: 065

REACTIONS (3)
  - Virologic failure [Unknown]
  - Foetal exposure during pregnancy [None]
  - Drug resistance [Unknown]
